FAERS Safety Report 5492382-7 (Version None)
Quarter: 2007Q4

REPORT INFORMATION
  Report Type: 
  Country: None (occurrence: None)
  Receive Date: 20071015
  Receipt Date: 20070716
  Transmission Date: 20080405
  Serious: No
  Sender: FDA-Public Use
  Company Number: 2007SP002551

PATIENT
  Age: 82 Year
  Sex: Male
  Weight: 77.5651 kg

DRUGS (8)
  1. LUNESTA [Suspect]
     Indication: INSOMNIA
     Dosage: 2 MG;HS;ORAL : 1 MG;HS;ORAL
     Route: 048
     Dates: start: 20070501, end: 20070701
  2. LUNESTA [Suspect]
     Indication: INSOMNIA
     Dosage: 2 MG;HS;ORAL : 1 MG;HS;ORAL
     Route: 048
     Dates: start: 20070701
  3. METFORMIN HCL [Concomitant]
  4. PREDNISONE TAB [Concomitant]
  5. SYNTHROID [Concomitant]
  6. ACIPHEX [Concomitant]
  7. BENICAR [Concomitant]
  8. ANTIHYPERTENSIVES [Concomitant]

REACTIONS (3)
  - DRUG INEFFECTIVE [None]
  - INSOMNIA [None]
  - SOMNOLENCE [None]
